FAERS Safety Report 5381250-7 (Version None)
Quarter: 2007Q3

REPORT INFORMATION
  Report Type: 
  Country: None (occurrence: None)
  Receive Date: 20070706
  Receipt Date: 20070629
  Transmission Date: 20080115
  Serious: Yes (Hospitalization)
  Sender: FDA-Public Use
  Company Number: ES-ABBOTT-07P-144-0360802-01

PATIENT
  Sex: Female

DRUGS (12)
  1. HUMIRA [Suspect]
     Indication: RHEUMATOID ARTHRITIS
     Route: 058
     Dates: start: 20041030, end: 20070301
  2. HUMIRA [Suspect]
     Route: 058
     Dates: start: 20070307
  3. COMMERCIAL HUMIRA [Concomitant]
     Indication: RHEUMATOID ARTHRITIS
     Dates: start: 20040514
  4. FENTANYL [Concomitant]
     Indication: DRUG USE FOR UNKNOWN INDICATION
  5. VOLTAREN [Concomitant]
     Indication: DRUG USE FOR UNKNOWN INDICATION
  6. OMEPRAZOLE [Concomitant]
     Indication: DRUG USE FOR UNKNOWN INDICATION
  7. METOTRESATE [Concomitant]
     Indication: DRUG USE FOR UNKNOWN INDICATION
  8. DEFLAZACORT [Concomitant]
     Indication: DRUG USE FOR UNKNOWN INDICATION
  9. PROTEOS GLIBENCLAMIDA [Concomitant]
     Indication: DRUG USE FOR UNKNOWN INDICATION
  10. ENALAPRIL [Concomitant]
     Indication: HYPERTENSION
     Dates: start: 20070101
  11. FUROSEMIDE [Concomitant]
     Indication: OEDEMA
     Dates: start: 20061203
  12. STRONTIUM RANELATE [Concomitant]
     Indication: OSTEOPOROSIS
     Dates: start: 20070214

REACTIONS (2)
  - ANXIETY [None]
  - LUNG DISORDER [None]
